FAERS Safety Report 18159807 (Version 1)
Quarter: 2020Q3

REPORT INFORMATION
  Report Type: Spontaneous
  Country: IR (occurrence: IR)
  Receive Date: 20200818
  Receipt Date: 20200818
  Transmission Date: 20201103
  Serious: Yes (Other)
  Sender: FDA-Public Use
  Company Number: IR-DENTSPLY-2020SCDP000256

PATIENT
  Age: 26 Year
  Sex: Male

DRUGS (7)
  1. LIDOCAINE HCL [Suspect]
     Active Substance: LIDOCAINE HYDROCHLORIDE
     Indication: ANAESTHESIA
  2. ATROPINE [ATROPINE SULFATE] [Concomitant]
     Indication: INCREASED BRONCHIAL SECRETION
     Dosage: 0.25 INTRAVENOUS ATROPINE WAS ADMINISTRATED, 30 MINUTES BEFORE THE NERVE BLOCK
     Route: 042
  3. FENTANYL. [Concomitant]
     Active Substance: FENTANYL
     Indication: FEELING OF RELAXATION
     Dosage: 50 MICROGRAM TO 150 MICROGRAMS
     Route: 042
  4. FENTANYL. [Concomitant]
     Active Substance: FENTANYL
     Dosage: 50 MICROGRAM TO 150 MICROGRAMS
     Route: 042
  5. OXYGEN. [Concomitant]
     Active Substance: OXYGEN
     Indication: PRODUCT USED FOR UNKNOWN INDICATION
     Dosage: OXYGEN WAS ADMINISTERED BY FACE MASK
  6. LIDOCAINE HCL [Suspect]
     Active Substance: LIDOCAINE HYDROCHLORIDE
     Indication: NERVE BLOCK
     Dosage: 3 MILLILITER OF 2% LIDOCAINE
  7. ATROPINE [ATROPINE SULFATE] [Concomitant]
     Indication: SECRETION DISCHARGE

REACTIONS (4)
  - Laryngospasm [Unknown]
  - Hypoxia [Unknown]
  - Bronchospasm [Unknown]
  - Therapeutic product effect incomplete [Unknown]
